FAERS Safety Report 25751928 (Version 1)
Quarter: 2025Q3

REPORT INFORMATION
  Report Type: Spontaneous
  Country: IN (occurrence: IN)
  Receive Date: 20250902
  Receipt Date: 20250902
  Transmission Date: 20251020
  Serious: Yes (Other)
  Sender: PURDUE
  Company Number: IN-PURDUE PHARMA-USA-2025-0320103

PATIENT
  Age: 18 Year
  Sex: Female

DRUGS (3)
  1. BUPRENORPHINE [Suspect]
     Active Substance: BUPRENORPHINE
     Indication: Drug dependence
     Route: 060
  2. NALTREXONE [Suspect]
     Active Substance: NALTREXONE
     Indication: Drug dependence
     Route: 065
  3. HEROIN [Suspect]
     Active Substance: DIAMORPHINE
     Indication: Product used for unknown indication
     Dosage: 0.25 GRAM, DAILY (ROUTE OF OPIOID USE: CHASING)
     Route: 065

REACTIONS (5)
  - Abortion spontaneous [Unknown]
  - Drug abuse [Unknown]
  - Treatment noncompliance [Unknown]
  - Maternal exposure during pregnancy [Unknown]
  - Drug withdrawal syndrome [Unknown]
